FAERS Safety Report 8140590 (Version 6)
Quarter: 2013Q2

REPORT INFORMATION
  Report Type: Spontaneous
  Country: US (occurrence: US)
  Receive Date: 20110916
  Receipt Date: 20130402
  Transmission Date: 20140414
  Serious: Yes (Hospitalization, Other)
  Sender: FDA-Public Use
  Company Number: US-BAYER-2011-084514

PATIENT
  Age: 19 Year
  Sex: Female

DRUGS (3)
  1. YAZ [Suspect]
     Indication: ORAL CONTRACEPTION
     Dosage: UNK
     Dates: start: 2006, end: 2009
  2. YAZ [Suspect]
     Indication: ACNE
  3. NAPROXEN [Concomitant]
     Indication: MIGRAINE

REACTIONS (6)
  - Gallbladder disorder [None]
  - Pain [None]
  - Cholecystitis chronic [None]
  - Injury [None]
  - Anhedonia [None]
  - Pain [None]
